FAERS Safety Report 5645853-4 (Version None)
Quarter: 2008Q1

REPORT INFORMATION
  Report Type: 
  Country: None (occurrence: None)
  Receive Date: 20080229
  Receipt Date: 20080218
  Transmission Date: 20080703
  Serious: Yes (Other)
  Sender: FDA-Public Use
  Company Number: US-PFIZER INC-2008014671

PATIENT
  Sex: Female
  Weight: 53.5 kg

DRUGS (4)
  1. CHANTIX [Suspect]
     Indication: SMOKING CESSATION THERAPY
  2. ASCORBIC ACID [Concomitant]
  3. CALCIUM [Concomitant]
  4. FIBRE, DIETARY [Concomitant]

REACTIONS (2)
  - ABNORMAL DREAMS [None]
  - DEPRESSION [None]
